FAERS Safety Report 16983562 (Version 4)
Quarter: 2020Q1

REPORT INFORMATION
  Report Type: Spontaneous
  Country: CH (occurrence: CH)
  Receive Date: 20191101
  Receipt Date: 20200106
  Transmission Date: 20200409
  Serious: Yes (Hospitalization)
  Sender: FDA-Public Use
  Company Number: CH-MYLANLABS-2019M1103884

PATIENT
  Age: 84 Year
  Sex: Female

DRUGS (22)
  1. ESIDREX [Suspect]
     Active Substance: HYDROCHLOROTHIAZIDE
     Indication: PRODUCT USED FOR UNKNOWN INDICATION
     Dosage: 12.5 MILLIGRAM, QD
     Route: 048
     Dates: start: 20191016, end: 20191018
  2. LASIX [Concomitant]
     Active Substance: FUROSEMIDE
     Dosage: 20 MILLIGRAM, BID
     Dates: start: 20191001, end: 20191007
  3. MOVICOL [Concomitant]
     Active Substance: POLYETHYLENE GLYCOL 3350\POTASSIUM CHLORIDE\SODIUM BICARBONATE\SODIUM CHLORIDE
     Dosage: UNK UNK, PRN
     Route: 048
     Dates: start: 20191004
  4. LIDOCAINE HYDROCHLORIDE. [Concomitant]
     Active Substance: LIDOCAINE HYDROCHLORIDE
     Dosage: 1 DOSAGE FORM, TOTAL
     Route: 058
     Dates: start: 20191014, end: 20191014
  5. ISONIAZID. [Concomitant]
     Active Substance: ISONIAZID
     Dosage: UNK
     Dates: start: 20190731
  6. CLEXANE [Suspect]
     Active Substance: ENOXAPARIN SODIUM
     Indication: PRODUCT USED FOR UNKNOWN INDICATION
     Dosage: 50 MILLIGRAM, Q2D
     Route: 058
     Dates: start: 20191009, end: 201910
  7. CLEXANE [Suspect]
     Active Substance: ENOXAPARIN SODIUM
     Dosage: 40 MILLIGRAM, Q2D
     Route: 058
     Dates: start: 201910, end: 20191016
  8. VISIPAQUE [Suspect]
     Active Substance: IODIXANOL
     Indication: PRODUCT USED FOR UNKNOWN INDICATION
     Dosage: 40 MILLILITER, TOTAL
     Route: 022
     Dates: start: 20191014, end: 20191014
  9. SINTROM [Concomitant]
     Active Substance: ACENOCOUMAROL
     Dosage: UNK
  10. VITARUBIN                          /00056201/ [Concomitant]
     Dosage: UNK
  11. METOLAZONE. [Concomitant]
     Active Substance: METOLAZONE
     Dosage: 2.5 MILLIGRAM, QD
     Route: 048
     Dates: start: 20191006, end: 20191007
  12. RIFAMPICIN [Concomitant]
     Active Substance: RIFAMPIN
     Dosage: UNK
     Dates: start: 20190731
  13. DAFALGAN [Concomitant]
     Active Substance: ACETAMINOPHEN
     Indication: PAIN
     Dosage: UNK UNK, PRN
     Route: 048
  14. VISIPAQUE [Suspect]
     Active Substance: IODIXANOL
     Dosage: 1 DOSAGE FORM, TOTAL
     Route: 042
     Dates: start: 20191014, end: 20191014
  15. ISOPTINE [Suspect]
     Active Substance: VERAPAMIL HYDROCHLORIDE
     Indication: PRODUCT USED FOR UNKNOWN INDICATION
     Dosage: 2.5 MILLIGRAM, TOTAL
     Route: 013
     Dates: start: 20191014, end: 20191014
  16. REOMAX /00020501/ [Suspect]
     Active Substance: ETHACRYNIC ACID
     Dosage: UNK
     Dates: start: 20191018
  17. TORASEMIDE [Suspect]
     Active Substance: TORSEMIDE
     Indication: PRODUCT USED FOR UNKNOWN INDICATION
     Dosage: 15 MILLIGRAM, QD
     Route: 048
     Dates: start: 20191008, end: 20191016
  18. VITAMIN B6 [Concomitant]
     Active Substance: PYRIDOXINE HYDROCHLORIDE
     Dosage: UNK
  19. HEPARIN [Concomitant]
     Active Substance: HEPARIN SODIUM
     Dosage: 4000 INTERNATIONAL UNIT, TOTAL
     Route: 013
     Dates: start: 20191014, end: 20191014
  20. TEMESTA EXPIDET [Concomitant]
     Active Substance: LORAZEPAM
     Dosage: UNK
  21. ACIDUM FOLICUM [Concomitant]
     Active Substance: FOLIC ACID
     Dosage: UNK
  22. BELOC ZOK [Concomitant]
     Active Substance: METOPROLOL SUCCINATE
     Dosage: UNK

REACTIONS (4)
  - C-reactive protein increased [Recovering/Resolving]
  - Pain [Recovered/Resolved]
  - Rash maculo-papular [Recovered/Resolved]
  - Pyrexia [Recovered/Resolved]

NARRATIVE: CASE EVENT DATE: 20191015
